FAERS Safety Report 8146981-4 (Version None)
Quarter: 2012Q1

REPORT INFORMATION
  Report Type: 
  Country: None (occurrence: None)
  Receive Date: 20120217
  Receipt Date: 20120210
  Transmission Date: 20120608
  Serious: Yes (Hospitalization)
  Sender: FDA-Public Use
  Company Number: US-ASTRAZENECA-2012SE09159

PATIENT
  Age: 65 Year
  Sex: Female
  Weight: 120.2 kg

DRUGS (3)
  1. PULMICORT-100 [Suspect]
     Indication: EMPHYSEMA
     Dosage: 1 MG, 2ML BID
     Route: 055
     Dates: start: 20111113, end: 20111201
  2. PULMICORT-100 [Suspect]
     Indication: ASTHMA
     Dosage: 1 MG, 2ML BID
     Route: 055
     Dates: start: 20111113, end: 20111201
  3. BROVANA [Concomitant]

REACTIONS (3)
  - OFF LABEL USE [None]
  - MUSCLE SPASMS [None]
  - DYSPNOEA [None]
